FAERS Safety Report 14189988 (Version 1)
Quarter: 2017Q4

REPORT INFORMATION
  Report Type: Spontaneous
  Country: US (occurrence: US)
  Receive Date: 20171115
  Receipt Date: 20171115
  Transmission Date: 20180321
  Serious: No
  Sender: FDA-Public Use
  Company Number: US-PFIZER INC-2017489123

PATIENT
  Age: 13 Year
  Sex: Male
  Weight: 125 kg

DRUGS (1)
  1. GENOTROPIN [Suspect]
     Active Substance: SOMATROPIN
     Indication: HYPOPITUITARISM
     Dosage: 2.2 MG, 1X/DAY(SEVEN DAYS PER WEEK)
     Route: 058

REACTIONS (1)
  - Arthralgia [Recovered/Resolved]
